FAERS Safety Report 9990782 (Version 1)
Quarter: 2014Q1

REPORT INFORMATION
  Report Type: Report from Study
  Country: US (occurrence: US)
  Receive Date: 20140310
  Receipt Date: 20140310
  Transmission Date: 20141002
  Serious: No
  Sender: FDA-Public Use
  Company Number: US-ABBVIE-13P-163-1135587-00

PATIENT
  Age: 66 Year
  Sex: Female

DRUGS (19)
  1. HUMIRA [Suspect]
     Indication: COLITIS ULCERATIVE
     Dates: start: 20130517
  2. PREDNISONE [Suspect]
     Indication: PRODUCT USED FOR UNKNOWN INDICATION
     Dosage: MONDAY, WEDNESDAY AND FRIDAY
  3. PREDNISONE [Suspect]
     Dosage: OTHER DAYS
  4. ATIVAN [Concomitant]
     Indication: PRODUCT USED FOR UNKNOWN INDICATION
     Dosage: USUALLY ONLY TAKES 2-3
  5. LOSARTAN [Concomitant]
     Indication: BLOOD PRESSURE
  6. XYZAL [Concomitant]
     Indication: SINUS CONGESTION
  7. XYZAL [Concomitant]
     Indication: SINUS DISORDER
  8. CYMBALTA [Concomitant]
     Indication: DEPRESSION
  9. CYMBALTA [Concomitant]
     Indication: ARTHRALGIA
  10. OMEPRAZOLE [Concomitant]
     Indication: GASTROOESOPHAGEAL REFLUX DISEASE
  11. CRESTOR [Concomitant]
     Indication: BLOOD CHOLESTEROL
  12. CODEINE [Concomitant]
     Indication: HEADACHE
  13. CODEINE [Concomitant]
     Indication: STRESS
  14. CODEINE [Concomitant]
     Indication: MIGRAINE
  15. ALEVE WITH CODEINE [Concomitant]
     Indication: PRODUCT USED FOR UNKNOWN INDICATION
     Dosage: AT LEAST ONCE DAILY
  16. CENTRUM SILVER MULTIVITAMIN [Concomitant]
     Indication: PRODUCT USED FOR UNKNOWN INDICATION
  17. CHONDROITIN SULFATE [Concomitant]
     Indication: ARTHRITIS
  18. IRON [Concomitant]
     Indication: PRODUCT USED FOR UNKNOWN INDICATION
  19. CITRACAL [Concomitant]
     Indication: SUPPLEMENTATION THERAPY

REACTIONS (2)
  - Nervousness [Not Recovered/Not Resolved]
  - Stress [Not Recovered/Not Resolved]
